FAERS Safety Report 13851412 (Version 4)
Quarter: 2018Q1

REPORT INFORMATION
  Report Type: Report from Study
  Country: US (occurrence: US)
  Receive Date: 20170809
  Receipt Date: 20180208
  Transmission Date: 20180508
  Serious: Yes (Other)
  Sender: FDA-Public Use
  Company Number: US-JNJFOC-20170627739

PATIENT
  Age: 77 Year
  Sex: Female
  Weight: 58 kg

DRUGS (16)
  1. LIPITOR [Concomitant]
     Active Substance: ATORVASTATIN CALCIUM
  2. IMBRUVICA [Suspect]
     Active Substance: IBRUTINIB
     Indication: WALDENSTROM^S MACROGLOBULINAEMIA
     Route: 048
     Dates: start: 20170609
  3. TIZANIDINE. [Concomitant]
     Active Substance: TIZANIDINE
  4. NORCO [Concomitant]
     Active Substance: ACETAMINOPHEN\HYDROCODONE BITARTRATE
  5. LOPID [Concomitant]
     Active Substance: GEMFIBROZIL
  6. PROTONIX [Concomitant]
     Active Substance: PANTOPRAZOLE SODIUM
  7. NORVASC [Concomitant]
     Active Substance: AMLODIPINE BESYLATE
  8. ASPIRIN. [Suspect]
     Active Substance: ASPIRIN
     Indication: PRODUCT USED FOR UNKNOWN INDICATION
     Route: 065
     Dates: end: 201709
  9. SINGULAIR [Concomitant]
     Active Substance: MONTELUKAST SODIUM
  10. IMBRUVICA [Suspect]
     Active Substance: IBRUTINIB
     Indication: WALDENSTROM^S MACROGLOBULINAEMIA
     Route: 048
     Dates: start: 20170610
  11. ATIVAN [Concomitant]
     Active Substance: LORAZEPAM
  12. GABAPENTIN. [Concomitant]
     Active Substance: GABAPENTIN
  13. PAXIL [Concomitant]
     Active Substance: PAROXETINE HYDROCHLORIDE
  14. CALCITRIOL. [Concomitant]
     Active Substance: CALCITRIOL
  15. SYNTHROID [Concomitant]
     Active Substance: LEVOTHYROXINE SODIUM
  16. PLAVIX [Suspect]
     Active Substance: CLOPIDOGREL BISULFATE
     Indication: PRODUCT USED FOR UNKNOWN INDICATION
     Route: 065

REACTIONS (16)
  - Eye haemorrhage [Not Recovered/Not Resolved]
  - Chills [Unknown]
  - Contusion [Not Recovered/Not Resolved]
  - Flatulence [Unknown]
  - Bleeding time prolonged [Unknown]
  - Oral herpes [Unknown]
  - Rash maculo-papular [Not Recovered/Not Resolved]
  - Laceration [Recovered/Resolved]
  - Abdominal distension [Unknown]
  - Wound haemorrhage [Unknown]
  - Coagulation time prolonged [Unknown]
  - Ear haemorrhage [Recovered/Resolved]
  - Haemorrhage [Unknown]
  - Ear discomfort [Unknown]
  - Sinusitis [Unknown]
  - Animal scratch [Unknown]

NARRATIVE: CASE EVENT DATE: 20170617
